FAERS Safety Report 4610016-8 (Version None)
Quarter: 2005Q1

REPORT INFORMATION
  Report Type: 
  Country: None (occurrence: None)
  Receive Date: 20050316
  Receipt Date: 20050307
  Transmission Date: 20050727
  Serious: Yes (Hospitalization)
  Sender: FDA-Public Use
  Company Number: US-JNJFOC-20041104728

PATIENT
  Sex: Female
  Weight: 56.7 kg

DRUGS (14)
  1. LEVAQUIN [Suspect]
     Indication: URINARY TRACT INFECTION
     Route: 049
     Dates: start: 20041004, end: 20041013
  2. ANACIN [Concomitant]
  3. ANACIN [Concomitant]
  4. CALCIUM GLUCONATE [Concomitant]
  5. ALLEGRA [Concomitant]
  6. MULTI-VITAMINS [Concomitant]
  7. MULTI-VITAMINS [Concomitant]
  8. MULTI-VITAMINS [Concomitant]
  9. MULTI-VITAMINS [Concomitant]
  10. MULTI-VITAMINS [Concomitant]
  11. MULTI-VITAMINS [Concomitant]
  12. MULTI-VITAMINS [Concomitant]
  13. MULTI-VITAMINS [Concomitant]
  14. ULTRACET [Concomitant]

REACTIONS (2)
  - ENCEPHALOPATHY [None]
  - WEST NILE VIRAL INFECTION [None]
